FAERS Safety Report 8304533-7 (Version None)
Quarter: 2012Q2

REPORT INFORMATION
  Report Type: 
  Country: None (occurrence: None)
  Receive Date: 20120423
  Receipt Date: 20120410
  Transmission Date: 20120825
  Serious: Yes (Other)
  Sender: FDA-Public Use
  Company Number: US-GLAXOSMITHKLINE-A0966403A

PATIENT
  Age: 78 Year
  Sex: Female

DRUGS (11)
  1. VITAMIN D [Concomitant]
  2. FLOVENT [Concomitant]
  3. ADVAIR DISKUS 100/50 [Suspect]
     Indication: CHRONIC OBSTRUCTIVE PULMONARY DISEASE
     Dosage: 1PUFF TWICE PER DAY
     Route: 055
  4. DIOVAN [Concomitant]
  5. ASPIRIN [Concomitant]
  6. NEXIUM [Concomitant]
  7. PREDNISONE TAB [Concomitant]
  8. TRAMADOL HCL [Concomitant]
  9. CALCIUM [Concomitant]
  10. DIETHYLPROPION [Concomitant]
  11. POTASSIUM CHLORIDE [Concomitant]

REACTIONS (1)
  - GINGIVAL ATROPHY [None]
